FAERS Safety Report 8769754 (Version 2)
Quarter: 2012Q4

REPORT INFORMATION
  Report Type: Report from Study
  Country: JP (occurrence: JP)
  Receive Date: 20120905
  Receipt Date: 20121114
  Transmission Date: 20130627
  Serious: Yes (Hospitalization)
  Sender: FDA-Public Use
  Company Number: JP-EISAI INC-E7389-02946-CLI-JP

PATIENT
  Age: 47 Year
  Sex: Female
  Weight: 47 kg

DRUGS (11)
  1. HALAVEN [Suspect]
     Indication: BREAST CANCER RECURRENT
     Route: 041
     Dates: start: 20110920, end: 20111018
  2. HALAVEN [Suspect]
     Indication: METASTASES TO LYMPH NODES
  3. HALAVEN [Suspect]
     Indication: METASTASES TO LIVER
  4. HALAVEN [Suspect]
     Indication: METASTASES TO BONE
  5. SEROTONE [Concomitant]
     Indication: PROPHYLAXIS
     Route: 065
  6. DECADRON [Concomitant]
     Indication: PROPHYLAXIS
     Route: 065
  7. SAXIZON [Concomitant]
     Indication: PROPHYLAXIS
     Route: 065
  8. HISHIPAHAGEN-C [Concomitant]
     Indication: PROPHYLAXIS
     Route: 065
  9. GLYCYRON [Concomitant]
     Indication: PROPHYLAXIS
     Route: 048
  10. GOKUMISIN [Concomitant]
     Indication: PROPHYLAXIS
     Route: 048
  11. TAKEPRON [Concomitant]
     Indication: PROPHYLAXIS
     Route: 048

REACTIONS (1)
  - Leukopenia [Recovered/Resolved]
